FAERS Safety Report 7334849-2 (Version None)
Quarter: 2011Q1

REPORT INFORMATION
  Report Type: 
  Country: None (occurrence: None)
  Receive Date: 20110224
  Receipt Date: 20110216
  Transmission Date: 20110831
  Serious: Yes (Hospitalization, Other)
  Sender: FDA-Public Use
  Company Number: 016867

PATIENT
  Sex: Female
  Weight: 86 kg

DRUGS (8)
  1. TYLENOL-500 [Concomitant]
  2. INVESTIGATIONAL DRUG (INVESTIGATIONAL DRUG) [Suspect]
     Indication: OSTEOARTHRITIS
     Dosage: 1 ML 1X/8 WEEKS; SUBCUTANEOUS
     Route: 058
     Dates: start: 20100513, end: 20100513
  3. METFORMIN HCL [Concomitant]
  4. LORTAB [Suspect]
     Indication: ARTHRALGIA
     Dosage: 1 TAB PRN, ORAL
     Route: 048
     Dates: start: 20100714, end: 20100714
  5. OMEPRAZOLE [Concomitant]
  6. VITAMIN D [Concomitant]
  7. MACROBID [Concomitant]
  8. IBUPROFEN [Concomitant]

REACTIONS (13)
  - AORTIC VALVE CALCIFICATION [None]
  - HAEMOGLOBIN DECREASED [None]
  - TRICUSPID VALVE INCOMPETENCE [None]
  - SYNCOPE [None]
  - CHONDROCALCINOSIS [None]
  - PULMONARY ARTERIAL HYPERTENSION [None]
  - LEFT ATRIAL DILATATION [None]
  - HYPERDYNAMIC LEFT VENTRICLE [None]
  - VOMITING [None]
  - AORTIC STENOSIS [None]
  - BRADYCARDIA [None]
  - BLOOD ALKALINE PHOSPHATASE INCREASED [None]
  - ASPARTATE AMINOTRANSFERASE INCREASED [None]
